FAERS Safety Report 4304160-2 (Version None)
Quarter: 2004Q1

REPORT INFORMATION
  Report Type: 
  Country: None (occurrence: None)
  Receive Date: 20040225
  Receipt Date: 20040224
  Transmission Date: 20041129
  Serious: Yes (Death, Hospitalization)
  Sender: FDA-Public Use
  Company Number: 04-02-0283

PATIENT
  Age: 66 Year
  Sex: Female

DRUGS (1)
  1. CLOZAPINE [Suspect]
     Indication: SCHIZOPHRENIA
     Dosage: 36.5-200 MG QD ORAL
     Route: 048
     Dates: start: 20010901, end: 20040101

REACTIONS (1)
  - GASTROINTESTINAL CARCINOMA [None]
